FAERS Safety Report 7456381-8 (Version None)
Quarter: 2011Q2

REPORT INFORMATION
  Report Type: 
  Country: None (occurrence: None)
  Receive Date: 20110503
  Receipt Date: 20110429
  Transmission Date: 20111010
  Serious: Yes (Other)
  Sender: FDA-Public Use
  Company Number: AU-PFIZER INC-2011079753

PATIENT
  Sex: Male

DRUGS (1)
  1. CABASER [Suspect]
     Indication: PARKINSON'S DISEASE

REACTIONS (2)
  - PERSONALITY CHANGE [None]
  - GAMBLING [None]
